FAERS Safety Report 10417376 (Version 1)
Quarter: 2014Q3

REPORT INFORMATION
  Report Type: Spontaneous
  Country: JP (occurrence: JP)
  Receive Date: 20140829
  Receipt Date: 20140829
  Transmission Date: 20150326
  Serious: Yes (Hospitalization)
  Sender: FDA-Public Use
  Company Number: PHHY2014JP106384

PATIENT
  Age: 56 Year
  Sex: Male

DRUGS (4)
  1. CEFEPIME [Suspect]
     Active Substance: CEFEPIME\CEFEPIME HYDROCHLORIDE
     Indication: SPINAL CORD INFECTION
  2. VORICONAZOLE. [Suspect]
     Active Substance: VORICONAZOLE
     Indication: SPINAL CORD INFECTION
  3. RIFAMPICIN [Suspect]
     Active Substance: RIFAMPIN
     Indication: SPINAL CORD INFECTION
  4. CEFAZOLIN [Suspect]
     Active Substance: CEFAZOLIN
     Indication: SPINAL CORD INFECTION

REACTIONS (3)
  - C-reactive protein increased [Recovered/Resolved]
  - Candida infection [Recovered/Resolved]
  - Back pain [Recovered/Resolved]
